FAERS Safety Report 14436401 (Version 1)
Quarter: 2018Q1

REPORT INFORMATION
  Report Type: Spontaneous
  Country: US (occurrence: US)
  Receive Date: 20180124
  Receipt Date: 20180124
  Transmission Date: 20180509
  Serious: Yes (Disabling)
  Sender: FDA-Public Use
  Company Number: None

PATIENT
  Age: 75 Year
  Sex: Male
  Weight: 72.9 kg

DRUGS (7)
  1. AZOPT [Concomitant]
     Active Substance: BRINZOLAMIDE
  2. TWO VITAMINS [Concomitant]
  3. DORZOLAMIDE HCI -TIMOLOL MALEATE OPHTHALMIC SOLUTION [Suspect]
     Active Substance: DORZOLAMIDE HYDROCHLORIDE\TIMOLOL MALEATE
     Indication: GLAUCOMA
     Route: 047
     Dates: start: 20180101, end: 20180120
  4. LANTAPROST [Concomitant]
  5. PEPCID [Concomitant]
     Active Substance: FAMOTIDINE
  6. ALIGN [Concomitant]
     Active Substance: BIFIDOBACTERIUM LONGUM SUBSP. INFANTIS
  7. TWO VITAMINS [Concomitant]

REACTIONS (9)
  - Erythema of eyelid [None]
  - Eyelid pain [None]
  - Product substitution issue [None]
  - Eye pruritus [None]
  - Deformity [None]
  - Product contamination physical [None]
  - Skin discolouration [None]
  - Eyelids pruritus [None]
  - Eye swelling [None]

NARRATIVE: CASE EVENT DATE: 20180101
